FAERS Safety Report 20011086 (Version 1)
Quarter: 2021Q4

REPORT INFORMATION
  Report Type: Report from Study
  Country: US (occurrence: US)
  Receive Date: 20211028
  Receipt Date: 20211028
  Transmission Date: 20220303
  Serious: Yes (Hospitalization)
  Sender: FDA-Public Use
  Company Number: US-SERVIER-S21011783

PATIENT

DRUGS (7)
  1. PEGASPARGASE [Suspect]
     Active Substance: PEGASPARGASE
     Indication: Acute lymphocytic leukaemia
     Dosage: 4672.5 IU, OTHER
     Route: 042
     Dates: start: 20201116
  2. DAUNORUBICIN HYDROCHLORIDE [Suspect]
     Active Substance: DAUNORUBICIN HYDROCHLORIDE
     Indication: Acute lymphocytic leukaemia
     Dosage: 12.5 MG, OTHER
     Route: 042
     Dates: start: 20201112
  3. RUXOLITINIB PHOSPHATE [Suspect]
     Active Substance: RUXOLITINIB PHOSPHATE
     Indication: Acute lymphocytic leukaemia
     Dosage: 90 MG, BID
     Route: 048
     Dates: start: 20210105
  4. CYTARABINE [Suspect]
     Active Substance: CYTARABINE
     Indication: Acute lymphocytic leukaemia
     Dosage: 4672.6 MG, OTHER
     Route: 042
     Dates: start: 20201116
  5. METHOTREXATE SODIUM [Suspect]
     Active Substance: METHOTREXATE SODIUM
     Indication: Acute lymphocytic leukaemia
     Dosage: 15 MG, OTHER
     Route: 037
     Dates: start: 20201211
  6. VINCRISTINE SULFATE [Suspect]
     Active Substance: VINCRISTINE SULFATE
     Indication: Acute lymphocytic leukaemia
     Dosage: 2 MG, OTHER
     Dates: start: 20201112
  7. GRANISETRON HYDROCHLORIDE [Concomitant]
     Active Substance: GRANISETRON HYDROCHLORIDE
     Indication: Product used for unknown indication
     Dosage: UNK
     Route: 065
     Dates: start: 20201111

REACTIONS (4)
  - Hepatic function abnormal [Not Recovered/Not Resolved]
  - Coagulopathy [Recovered/Resolved]
  - Staphylococcal bacteraemia [Recovered/Resolved]
  - Febrile neutropenia [Recovered/Resolved]

NARRATIVE: CASE EVENT DATE: 20201203
